FAERS Safety Report 14607592 (Version 2)
Quarter: 2018Q1

REPORT INFORMATION
  Report Type: Report from Study
  Country: BR (occurrence: BR)
  Receive Date: 20180307
  Receipt Date: 20180323
  Transmission Date: 20180509
  Serious: Yes (Hospitalization, Other)
  Sender: FDA-Public Use
  Company Number: PHHY2018BR036132

PATIENT
  Sex: Female
  Weight: 78 kg

DRUGS (1)
  1. VOTRIENT [Suspect]
     Active Substance: PAZOPANIB HYDROCHLORIDE
     Indication: METASTATIC RENAL CELL CARCINOMA
     Dosage: 400 MG, Q12H
     Route: 048
     Dates: start: 20170919

REACTIONS (15)
  - Fatigue [Not Recovered/Not Resolved]
  - Dyspnoea [Not Recovered/Not Resolved]
  - Peripheral swelling [Unknown]
  - Dyspepsia [Unknown]
  - Hair colour changes [Unknown]
  - Dizziness [Not Recovered/Not Resolved]
  - Hepatic neoplasm [Unknown]
  - Visual impairment [Unknown]
  - Weight decreased [Unknown]
  - Diarrhoea [Unknown]
  - Pulmonary congestion [Recovering/Resolving]
  - Headache [Unknown]
  - Retching [Unknown]
  - Abdominal pain [Unknown]
  - Vomiting [Unknown]
